FAERS Safety Report 6146744-5 (Version None)
Quarter: 2009Q2

REPORT INFORMATION
  Report Type: 
  Country: None (occurrence: None)
  Receive Date: 20090407
  Receipt Date: 20090401
  Transmission Date: 20091009
  Serious: Yes (Death, Hospitalization)
  Sender: FDA-Public Use
  Company Number: DE-AVENTIS-200910892DE

PATIENT
  Sex: Female

DRUGS (4)
  1. TAXOTERE [Suspect]
     Route: 041
     Dates: start: 20090301, end: 20090301
  2. FLUOROURACIL [Concomitant]
     Dosage: DOSE: NOT REPORTED
  3. EPIRUBICIN [Concomitant]
     Dosage: DOSE: NOT REPORTED
  4. CYCLOPHOSPHAMIDE [Concomitant]
     Dosage: DOSE: NOT REPORTED

REACTIONS (4)
  - AGRANULOCYTOSIS [None]
  - ENTEROCOLITIS [None]
  - MULTI-ORGAN FAILURE [None]
  - PERITONITIS [None]
